FAERS Safety Report 18314112 (Version 3)
Quarter: 2020Q4

REPORT INFORMATION
  Report Type: Report from Study
  Country: None (occurrence: PT)
  Receive Date: 20200926
  Receipt Date: 20201116
  Transmission Date: 20210113
  Serious: Yes (Other)
  Sender: FDA-Public Use
  Company Number: PT-ABBVIE-20K-130-3578441-00

PATIENT
  Sex: Female

DRUGS (1)
  1. HUMIRA [Suspect]
     Active Substance: ADALIMUMAB
     Indication: ANKYLOSING SPONDYLITIS
     Route: 058
     Dates: start: 20160608

REACTIONS (4)
  - Dizziness [Unknown]
  - Eye swelling [Unknown]
  - Hypersensitivity [Unknown]
  - Contusion [Unknown]

NARRATIVE: CASE EVENT DATE: 2016
